FAERS Safety Report 12724260 (Version 1)
Quarter: 2016Q3

REPORT INFORMATION
  Report Type: Spontaneous
  Country: ES (occurrence: US)
  Receive Date: 20160903
  Receipt Date: 20160903
  Transmission Date: 20161109
  Serious: Yes (Hospitalization)
  Sender: FDA-Public Use
  Company Number: None

PATIENT
  Age: 60 Year
  Sex: Female
  Weight: 60 kg

DRUGS (4)
  1. PAROXETIN [Concomitant]
     Active Substance: PAROXETINE HYDROCHLORIDE
  2. TAXOL [Suspect]
     Active Substance: PACLITAXEL
     Dates: end: 20120118
  3. CISPLATIN. [Suspect]
     Active Substance: CISPLATIN
     Dates: end: 20120118
  4. INSULINE [Concomitant]
     Active Substance: INSULIN NOS

REACTIONS (2)
  - Urinary tract infection [None]
  - Febrile neutropenia [None]

NARRATIVE: CASE EVENT DATE: 20120125
